FAERS Safety Report 7115734-8 (Version None)
Quarter: 2010Q4

REPORT INFORMATION
  Report Type: 
  Country: None (occurrence: None)
  Receive Date: 20101122
  Receipt Date: 20101118
  Transmission Date: 20110411
  Serious: Yes (Death)
  Sender: FDA-Public Use
  Company Number: PHHY2010US78788

PATIENT
  Sex: Female

DRUGS (1)
  1. EXJADE [Suspect]
     Indication: NEOPLASM MALIGNANT
     Dosage: 1500 MG, QD
     Route: 048

REACTIONS (1)
  - DEATH [None]
